FAERS Safety Report 17560767 (Version 1)
Quarter: 2020Q1

REPORT INFORMATION
  Report Type: Other
  Country: IN (occurrence: IN)
  Receive Date: 20200319
  Receipt Date: 20200319
  Transmission Date: 20200409
  Serious: Yes (Hospitalization, Other)
  Sender: FDA-Public Use
  Company Number: IN-AVONDALE PHARMACEUTICALS, LLC-2081779

PATIENT
  Age: 58 Year
  Sex: Female

DRUGS (1)
  1. MOBIC [Suspect]
     Active Substance: MELOXICAM
     Indication: ANKYLOSING SPONDYLITIS
     Route: 065

REACTIONS (2)
  - Large intestinal stenosis [Recovered/Resolved]
  - Incorrect product administration duration [Unknown]
